FAERS Safety Report 6409379-2 (Version None)
Quarter: 2009Q4

REPORT INFORMATION
  Report Type: 
  Country: None (occurrence: None)
  Receive Date: 20091019
  Receipt Date: 20091019
  Transmission Date: 20100525
  Serious: Yes (Hospitalization)
  Sender: FDA-Public Use
  Company Number: None

PATIENT
  Age: 53 Year
  Sex: Female
  Weight: 96.8 kg

DRUGS (13)
  1. ESTRACE [Suspect]
     Indication: BREAST CANCER
     Dosage: 2 MG 5 TABLETS (10MG) TID
     Dates: start: 20091001
  2. LISINOPRIL AND HYDROCHLOROTHIAZIDE [Concomitant]
  3. COUMADIN [Concomitant]
  4. OXYCODONE [Concomitant]
  5. SYNTHROID [Concomitant]
  6. VITAMIN B-12 [Concomitant]
  7. FISH OIL [Concomitant]
  8. PREVACID [Concomitant]
  9. CALCIUM GLUCONATE [Concomitant]
  10. MULTIVITAMIN WITH IRON [Concomitant]
  11. ZOFRAN [Concomitant]
  12. UNKNOWN ANTIBIOTICS [Concomitant]
  13. DILAUDID [Concomitant]

REACTIONS (4)
  - ABDOMINAL PAIN [None]
  - IMPAIRED GASTRIC EMPTYING [None]
  - NAUSEA [None]
  - VOMITING [None]
